FAERS Safety Report 9638872 (Version 1)
Quarter: 2013Q4

REPORT INFORMATION
  Report Type: Spontaneous
  Country: US (occurrence: US)
  Receive Date: 20131022
  Receipt Date: 20131022
  Transmission Date: 20140711
  Serious: No
  Sender: FDA-Public Use
  Company Number: US-BRISTOL-MYERS SQUIBB COMPANY-19128735

PATIENT
  Age: 82 Year
  Sex: Female
  Weight: 47.62 kg

DRUGS (3)
  1. ELIQUIS [Suspect]
     Indication: CARDIAC DISORDER
  2. METOPROLOL [Concomitant]
  3. DIGOXIN [Concomitant]

REACTIONS (1)
  - Drug administration error [Unknown]
